FAERS Safety Report 18243322 (Version 1)
Quarter: 2020Q3

REPORT INFORMATION
  Report Type: Report from Study
  Country: EG (occurrence: EG)
  Receive Date: 20200908
  Receipt Date: 20200908
  Transmission Date: 20201103
  Serious: Yes (Other)
  Sender: FDA-Public Use
  Company Number: EG-SEATTLE GENETICS-2019SGN02652

PATIENT
  Sex: Female

DRUGS (3)
  1. ZITHROCIN [Concomitant]
     Dosage: UNK
     Route: 065
  2. MUCO                               /00004702/ [Concomitant]
     Dosage: UNK
     Route: 065
  3. BRENTUXIMAB VEDOTIN [Suspect]
     Active Substance: BRENTUXIMAB VEDOTIN
     Indication: HODGKIN^S DISEASE REFRACTORY
     Dosage: UNK, Q3WEEKS
     Route: 042
     Dates: start: 20190709

REACTIONS (13)
  - Hodgkin^s disease [Unknown]
  - Bronchitis [Not Recovered/Not Resolved]
  - Vomiting [Unknown]
  - Asthma [Unknown]
  - Nausea [Unknown]
  - Cough [Unknown]
  - Urinary tract infection [Unknown]
  - Pneumonia [Unknown]
  - White blood cell count decreased [Unknown]
  - Weight decreased [Unknown]
  - Gastritis [Unknown]
  - Influenza [Unknown]
  - Neuropathy peripheral [Not Recovered/Not Resolved]
